APPROVED DRUG PRODUCT: OXYCODONE AND ACETAMINOPHEN
Active Ingredient: ACETAMINOPHEN; OXYCODONE HYDROCHLORIDE
Strength: 500MG;10MG
Dosage Form/Route: TABLET;ORAL
Application: A040676 | Product #001
Applicant: MIKART LLC
Approved: Apr 19, 2006 | RLD: No | RS: No | Type: DISCN